FAERS Safety Report 12116779 (Version 1)
Quarter: 2016Q1

REPORT INFORMATION
  Report Type: Spontaneous
  Country: GB (occurrence: GB)
  Receive Date: 20160225
  Receipt Date: 20160225
  Transmission Date: 20160526
  Serious: Yes (Other)
  Sender: FDA-Public Use
  Company Number: GB-TEVA-636086ACC

PATIENT
  Age: 81 Year
  Sex: Female
  Weight: 63 kg

DRUGS (5)
  1. GABAPENTIN. [Suspect]
     Active Substance: GABAPENTIN
     Dates: start: 20140403
  2. RANITIDINE [Concomitant]
     Active Substance: RANITIDINE\RANITIDINE HYDROCHLORIDE
     Dosage: 2 DOSAGE FORMS DAILY;
     Dates: start: 20151201
  3. DIPROBASE [Concomitant]
     Active Substance: CHLOROCRESOL
     Dosage: AS DIRECTED
     Dates: start: 20011017, end: 20151231
  4. OMEPRAZOLE. [Concomitant]
     Active Substance: OMEPRAZOLE
     Dosage: 2 DOSAGE FORMS DAILY;
     Dates: start: 20130617, end: 20151201
  5. BALNEUM [Concomitant]
     Dosage: APPLY TWICE DAILY
     Dates: start: 20151201

REACTIONS (1)
  - Acute kidney injury [Not Recovered/Not Resolved]

NARRATIVE: CASE EVENT DATE: 20160208
